FAERS Safety Report 5305001-7 (Version None)
Quarter: 2007Q2

REPORT INFORMATION
  Report Type: 
  Country: None (occurrence: None)
  Receive Date: 20070416
  Receipt Date: 20070330
  Transmission Date: 20071010
  Serious: Yes (Other)
  Sender: FDA-Public Use
  Company Number: 012054

PATIENT
  Age: 23 Year
  Sex: Female

DRUGS (1)
  1. TRI-SPRINTEC [Suspect]
     Indication: ORAL CONTRACEPTION
     Dosage: 1 TABLET, QD, ORAL
     Route: 048
     Dates: start: 20070313, end: 20070326

REACTIONS (3)
  - INTENTIONAL SELF-INJURY [None]
  - LACERATION [None]
  - REFUSAL OF TREATMENT BY PATIENT [None]
